FAERS Safety Report 6783515-0 (Version None)
Quarter: 2010Q2

REPORT INFORMATION
  Report Type: 
  Country: None (occurrence: None)
  Receive Date: 20100520
  Receipt Date: 20090625
  Transmission Date: 20101027
  Serious: Yes (Other)
  Sender: FDA-Public Use
  Company Number: 2008057497

PATIENT
  Age: 56 Year
  Sex: Female

DRUGS (8)
  1. PROVERA [Suspect]
     Indication: HORMONE REPLACEMENT THERAPY
     Dosage: ORAL
     Route: 048
     Dates: start: 19980101, end: 20040201
  2. PREMARIN [Suspect]
     Indication: HORMONE REPLACEMENT THERAPY
     Dates: start: 19980101, end: 20040201
  3. ESTRATEST [Suspect]
     Indication: HORMONE REPLACEMENT THERAPY
     Dosage: 1.25/0.6MG
     Dates: start: 20030101, end: 20040101
  4. PREMPRO [Suspect]
     Indication: HORMONE REPLACEMENT THERAPY
     Dosage: 0.625/2.5MG ; 0.625/5MG
     Dates: start: 20000101, end: 20001201
  5. PREMPRO [Suspect]
     Indication: HORMONE REPLACEMENT THERAPY
     Dosage: 0.625/2.5MG ; 0.625/5MG
     Dates: start: 19980201, end: 20030101
  6. PROMETRIUM [Suspect]
     Indication: HORMONE REPLACEMENT THERAPY
     Dosage: 100 MG
     Dates: start: 20030101, end: 20040201
  7. FEMHRT [Suspect]
     Indication: HORMONE REPLACEMENT THERAPY
     Dates: start: 19980101, end: 20040201
  8. EFFEXOR [Suspect]
     Indication: HORMONE REPLACEMENT THERAPY
     Dosage: 75 MG
     Dates: start: 20030101

REACTIONS (1)
  - BREAST CANCER FEMALE [None]
